FAERS Safety Report 18158935 (Version 2)
Quarter: 2022Q1

REPORT INFORMATION
  Report Type: Spontaneous
  Country: GR (occurrence: GR)
  Receive Date: 20200817
  Receipt Date: 20220311
  Transmission Date: 20220423
  Serious: Yes (Death, Other)
  Sender: FDA-Public Use
  Company Number: GR-JNJFOC-20200810281

PATIENT

DRUGS (2)
  1. IMBRUVICA [Suspect]
     Active Substance: IBRUTINIB
     Indication: Waldenstrom^s macroglobulinaemia
     Route: 048
  2. ZANUBRUTINIB [Suspect]
     Active Substance: ZANUBRUTINIB
     Indication: Waldenstrom^s macroglobulinaemia
     Route: 065

REACTIONS (44)
  - Sepsis [Fatal]
  - Drug-induced liver injury [Unknown]
  - Hepatitis [Unknown]
  - Myocardial infarction [Unknown]
  - Haemorrhage [Unknown]
  - Pneumonia [Unknown]
  - Neutropenia [Unknown]
  - Atrial fibrillation [Unknown]
  - Atrial flutter [Unknown]
  - Hypertension [Unknown]
  - Infection [Unknown]
  - Epistaxis [Unknown]
  - Cough [Unknown]
  - Rash [Unknown]
  - Arthralgia [Unknown]
  - Fatigue [Unknown]
  - Nausea [Unknown]
  - Vomiting [Unknown]
  - Pyrexia [Unknown]
  - Headache [Unknown]
  - Urinary tract infection [Unknown]
  - Haematuria [Unknown]
  - Dizziness [Unknown]
  - Constipation [Unknown]
  - Nasopharyngitis [Unknown]
  - Pain in extremity [Unknown]
  - Back pain [Unknown]
  - Dyspnoea [Unknown]
  - Febrile neutropenia [Unknown]
  - Thrombocytopenia [Unknown]
  - Anaemia [Unknown]
  - Bacterial sepsis [Unknown]
  - Interstitial lung disease [Unknown]
  - Oesophageal candidiasis [Unknown]
  - Localised infection [Unknown]
  - Pneumonitis [Unknown]
  - Adverse event [Unknown]
  - Diarrhoea [Unknown]
  - Muscle spasms [Unknown]
  - Upper respiratory tract infection [Unknown]
  - Contusion [Unknown]
  - Oedema peripheral [Unknown]
  - Haemorrhage [Unknown]
  - Infection [Unknown]
